FAERS Safety Report 9296012 (Version 1)
Quarter: 2013Q2

REPORT INFORMATION
  Report Type: Spontaneous
  Country: FR (occurrence: FR)
  Receive Date: 20130517
  Receipt Date: 20130517
  Transmission Date: 20140414
  Serious: Yes (Death, Life-Threatening, Hospitalization)
  Sender: FDA-Public Use
  Company Number: FR-ASTRAZENECA-2013SE33734

PATIENT
  Age: 87 Year
  Sex: Male

DRUGS (8)
  1. BRILIQUE [Suspect]
     Indication: ISCHAEMIC CARDIOMYOPATHY
     Route: 048
     Dates: start: 20130124, end: 20130213
  2. KARDEGIC [Suspect]
     Indication: ISCHAEMIC CARDIOMYOPATHY
     Route: 048
     Dates: start: 20130124, end: 20130215
  3. INEXIUM [Concomitant]
  4. INSULINE [Concomitant]
  5. TANGANIL [Concomitant]
  6. BISOCE [Concomitant]
  7. UVEDOSE [Concomitant]
  8. CIPROFLOXACINE [Concomitant]

REACTIONS (5)
  - Cerebral haemorrhage [Fatal]
  - Renal failure [Unknown]
  - Fall [Unknown]
  - Cardio-respiratory arrest [Unknown]
  - Amnesia [Unknown]
